FAERS Safety Report 20754879 (Version 2)
Quarter: 2022Q3

REPORT INFORMATION
  Report Type: Spontaneous
  Country: ES (occurrence: ES)
  Receive Date: 20220427
  Receipt Date: 20220722
  Transmission Date: 20221026
  Serious: Yes (Other)
  Sender: FDA-Public Use
  Company Number: ES-PENSA-202201064

PATIENT
  Age: 30 Year
  Sex: Male

DRUGS (5)
  1. LEVOFLOXACIN [Suspect]
     Active Substance: LEVOFLOXACIN
     Indication: Respiratory tract infection
     Dosage: 1 DOSAGE FORM, ONCE A DAY
     Route: 048
  2. ACETAMINOPHEN [Concomitant]
     Active Substance: ACETAMINOPHEN
     Indication: Pyrexia
     Dosage: 3 DOSAGE FORM, ONCE A DAY (3 TABLETS A DAY IF FEVER)
     Route: 048
  3. ACETAMINOPHEN [Concomitant]
     Active Substance: ACETAMINOPHEN
     Dosage: 1 DOSAGE FORM, 3 TIMES A DAY
     Route: 065
  4. LACTOBACILLUS RHAMNOSUS [Concomitant]
     Active Substance: LACTOBACILLUS RHAMNOSUS
     Indication: Probiotic therapy
     Dosage: 1 DOSAGE FORM, ONCE A DAY
     Route: 048
  5. LACTOBACILLUS RHAMNOSUS [Concomitant]
     Active Substance: LACTOBACILLUS RHAMNOSUS
     Indication: Dysbiosis

REACTIONS (10)
  - Pain [Unknown]
  - Feeling abnormal [Unknown]
  - Inflammation [Unknown]
  - Mental fatigue [Unknown]
  - Dizziness [Unknown]
  - Joint stiffness [Unknown]
  - Fatigue [Unknown]
  - Eye irritation [Unknown]
  - Confusional state [Unknown]
  - Swelling face [Unknown]
